FAERS Safety Report 8332660-7 (Version None)
Quarter: 2012Q1

REPORT INFORMATION
  Report Type: 
  Country: None (occurrence: None)
  Receive Date: 20120327
  Receipt Date: 20110110
  Transmission Date: 20120608
  Serious: Yes (Hospitalization, Other)
  Sender: FDA-Public Use
  Company Number: PHEH2009US18398

PATIENT
  Age: 66 Year
  Sex: Male
  Weight: 102 kg

DRUGS (6)
  1. PRAVASTATIN [Concomitant]
  2. AMBIEN [Concomitant]
  3. GLEEVEC [Suspect]
     Indication: CHRONIC MYELOID LEUKAEMIA
     Dosage: 800 MG, QD, ORAL; 800 MG, DAILY, ORAL
     Route: 048
     Dates: start: 20040101
  4. GLEEVEC [Suspect]
     Indication: CHRONIC MYELOID LEUKAEMIA
     Dosage: 800 MG, QD, ORAL; 800 MG, DAILY, ORAL
     Route: 048
     Dates: start: 20100316
  5. ASPIRIN [Concomitant]
  6. LISINOPRIL [Concomitant]

REACTIONS (10)
  - RHINITIS [None]
  - MUSCLE SPASMS [None]
  - DIARRHOEA [None]
  - RASH [None]
  - EPISTAXIS [None]
  - PERIORBITAL OEDEMA [None]
  - ASTHENIA [None]
  - CONTUSION [None]
  - EYE SWELLING [None]
  - ARTHROPATHY [None]
